FAERS Safety Report 21097844 (Version 1)
Quarter: 2022Q3

REPORT INFORMATION
  Report Type: Report from Study
  Country: AR (occurrence: AR)
  Receive Date: 20220719
  Receipt Date: 20220719
  Transmission Date: 20221027
  Serious: Yes (Life-Threatening, Hospitalization, Other)
  Sender: FDA-Public Use
  Company Number: AR-BRISTOL-MYERS SQUIBB COMPANY-2022-074701

PATIENT
  Age: 79 Year
  Sex: Male

DRUGS (1)
  1. ELIQUIS [Suspect]
     Active Substance: APIXABAN
     Indication: Product used for unknown indication
     Route: 065
     Dates: start: 20190501

REACTIONS (6)
  - Thrombosis [Unknown]
  - Fall [Unknown]
  - Lower limb fracture [Unknown]
  - Haematoma [Unknown]
  - Upper limb fracture [Unknown]
  - Confusional state [Unknown]

NARRATIVE: CASE EVENT DATE: 20220618
